FAERS Safety Report 14336867 (Version 1)
Quarter: 2017Q4

REPORT INFORMATION
  Report Type: Spontaneous
  Country: FR (occurrence: FR)
  Receive Date: 20171229
  Receipt Date: 20171229
  Transmission Date: 20180321
  Serious: Yes (Hospitalization)
  Sender: FDA-Public Use
  Company Number: FR-GUERBET-FR-20170655

PATIENT
  Age: 49 Year
  Sex: Female

DRUGS (1)
  1. OPTIJECT 350 [Suspect]
     Active Substance: IOVERSOL
     Indication: COMPUTERISED TOMOGRAM
     Route: 042
     Dates: start: 20170620, end: 20170620

REACTIONS (6)
  - Hypersensitivity [Recovered/Resolved]
  - Dysphonia [Recovered/Resolved]
  - Throat tightness [Recovered/Resolved]
  - Conjunctivitis [Recovered/Resolved]
  - Pruritus [Recovered/Resolved]
  - Eyelid oedema [Recovered/Resolved]

NARRATIVE: CASE EVENT DATE: 20170620
